FAERS Safety Report 6746768-0 (Version None)
Quarter: 2010Q2

REPORT INFORMATION
  Report Type: 
  Country: None (occurrence: None)
  Receive Date: 20100528
  Receipt Date: 20090826
  Transmission Date: 20101027
  Serious: No
  Sender: FDA-Public Use
  Company Number: A0805037A

PATIENT
  Age: 6 Month
  Sex: Male

DRUGS (1)
  1. VENTOLIN HFA [Suspect]
     Indication: MULTIPLE ALLERGIES

REACTIONS (3)
  - ADVERSE DRUG REACTION [None]
  - DRUG EXPOSURE VIA BREAST MILK [None]
  - DYSPNOEA [None]
